FAERS Safety Report 12863105 (Version 1)
Quarter: 2016Q4

REPORT INFORMATION
  Report Type: Spontaneous
  Country: US (occurrence: US)
  Receive Date: 20161019
  Receipt Date: 20161019
  Transmission Date: 20170207
  Serious: Yes (Hospitalization, Other)
  Sender: FDA-Public Use
  Company Number: US-ELI_LILLY_AND_COMPANY-US201610002326

PATIENT
  Sex: Male

DRUGS (5)
  1. HUMULIN R [Suspect]
     Active Substance: INSULIN HUMAN
     Indication: TYPE 2 DIABETES MELLITUS
     Dosage: SLIDING SCALE
     Route: 065
     Dates: start: 2009
  2. OMEPRAZOLE. [Concomitant]
     Active Substance: OMEPRAZOLE
  3. LASIX [Concomitant]
     Active Substance: FUROSEMIDE
     Dosage: 40 MG, UNKNOWN
  4. ZYRTEC [Concomitant]
     Active Substance: CETIRIZINE HYDROCHLORIDE
  5. NADOLOL. [Concomitant]
     Active Substance: NADOLOL

REACTIONS (8)
  - Non-alcoholic steatohepatitis [Unknown]
  - Deafness [Not Recovered/Not Resolved]
  - Blood glucose abnormal [Unknown]
  - Accident at work [Unknown]
  - Listeriosis [Recovered/Resolved]
  - Headache [Unknown]
  - Splenomegaly [Unknown]
  - Ear pain [Unknown]

NARRATIVE: CASE EVENT DATE: 2010
